FAERS Safety Report 22273785 (Version 10)
Quarter: 2023Q4

REPORT INFORMATION
  Report Type: Report from Study
  Country: US (occurrence: US)
  Receive Date: 20230502
  Receipt Date: 20231215
  Transmission Date: 20240109
  Serious: Yes (Other)
  Sender: FDA-Public Use
  Company Number: US-002147023-NVSC2023US097698

PATIENT
  Sex: Female

DRUGS (1)
  1. KESIMPTA [Suspect]
     Active Substance: OFATUMUMAB
     Indication: Relapsing multiple sclerosis
     Dosage: 20 MG, QMO
     Route: 058
     Dates: start: 20230501

REACTIONS (10)
  - Pulmonary embolism [Not Recovered/Not Resolved]
  - Cardiac arrest [Unknown]
  - Lower limb fracture [Unknown]
  - Restless legs syndrome [Recovered/Resolved]
  - Insomnia [Recovered/Resolved]
  - Pain in extremity [Not Recovered/Not Resolved]
  - Restlessness [Recovered/Resolved]
  - Fall [Unknown]
  - Wrong technique in device usage process [Recovered/Resolved]
  - Accidental exposure to product [Recovered/Resolved]
